FAERS Safety Report 9432058 (Version 1)
Quarter: 2013Q3

REPORT INFORMATION
  Report Type: Spontaneous
  Country: US (occurrence: US)
  Receive Date: 20130731
  Receipt Date: 20130731
  Transmission Date: 20140515
  Serious: Yes (Death, Other)
  Sender: FDA-Public Use
  Company Number: US-TEVA-421747USA

PATIENT
  Age: 2 Year
  Sex: Female

DRUGS (3)
  1. BUPRENORPHINE [Suspect]
     Route: 060
  2. CLONAZEPAM [Suspect]
     Route: 048
  3. PROCET [Suspect]
     Route: 048

REACTIONS (1)
  - Poisoning [Fatal]
